FAERS Safety Report 6193118-7 (Version None)
Quarter: 2009Q2

REPORT INFORMATION
  Report Type: 
  Country: None (occurrence: None)
  Receive Date: 20090514
  Receipt Date: 20090514
  Transmission Date: 20091009
  Serious: Yes (Other)
  Sender: FDA-Public Use
  Company Number: None

PATIENT
  Sex: Male
  Weight: 83.9154 kg

DRUGS (1)
  1. XIGRIS [Suspect]
     Indication: SEPSIS
     Dosage: INTRAVENOUS IN INTENSIVE CARE
     Route: 042
     Dates: start: 20030525, end: 20030527

REACTIONS (2)
  - ANAEMIA [None]
  - HAEMORRHAGIC DIATHESIS [None]
